FAERS Safety Report 8973886 (Version 1)
Quarter: 2012Q4

REPORT INFORMATION
  Report Type: 
  Country: US (occurrence: US)
  Receive Date: 20121218
  Receipt Date: 20121218
  Transmission Date: 20130627
  Serious: Yes (Hospitalization)
  Sender: FDA-Public Use
  Company Number: US-GLAXOSMITHKLINE-A1005080A

PATIENT
  Age: 44 Year
  Sex: Female

DRUGS (10)
  1. ADVAIR [Suspect]
     Indication: ASTHMA
     Dosage: 1PUFF Twice per day
     Route: 055
  2. SPIRIVA [Concomitant]
  3. SINGULAR [Concomitant]
  4. ALLEGRA [Concomitant]
  5. TAMBOCOR [Concomitant]
  6. UNKNOWN DRUG FOR ANXIETY [Concomitant]
  7. UNKNOWN STOMACH MEDICATION [Concomitant]
  8. SEIZURE MEDICATION [Concomitant]
     Dosage: 750MG Twice per day
     Route: 065
  9. CHEMOTHERAPY [Concomitant]
     Indication: BRAIN NEOPLASM MALIGNANT
  10. RADIATION THERAPY [Concomitant]

REACTIONS (3)
  - Brain neoplasm malignant [Not Recovered/Not Resolved]
  - Convulsion [Recovered/Resolved]
  - Nasopharyngitis [Not Recovered/Not Resolved]
